FAERS Safety Report 9670399 (Version 4)
Quarter: 2013Q4

REPORT INFORMATION
  Report Type: Report from Study
  Country: DE (occurrence: DE)
  Receive Date: 20131105
  Receipt Date: 20131226
  Transmission Date: 20140711
  Serious: Yes (Hospitalization, Other)
  Sender: FDA-Public Use
  Company Number: DE-PFIZER INC-2013309952

PATIENT
  Age: 65 Year
  Sex: Female
  Weight: 78 kg

DRUGS (5)
  1. INLYTA [Suspect]
     Indication: RENAL CANCER
     Dosage: 5 MG, 2X/DAY
     Dates: start: 20130927, end: 20131027
  2. MST [Concomitant]
     Indication: PAIN
     Dosage: 10 MG, UNK
     Route: 048
  3. KEPPRA [Concomitant]
     Indication: EPILEPSY
     Dosage: 500 MG, UNK
     Route: 048
  4. BELOC-ZOK MITE [Concomitant]
     Indication: BLOOD PRESSURE
     Dosage: 47.5 MG, UNK
     Route: 048
  5. EUTHYROX [Concomitant]
     Indication: THYROID DISORDER
     Dosage: 75 UG, UNK
     Route: 048

REACTIONS (7)
  - General physical health deterioration [Recovered/Resolved]
  - Mucosal inflammation [Recovering/Resolving]
  - Candida infection [Recovering/Resolving]
  - Dehydration [Recovered/Resolved]
  - Urinary tract infection [Recovered/Resolved]
  - C-reactive protein increased [Unknown]
  - Blood lactate dehydrogenase increased [Unknown]
